FAERS Safety Report 4670026-1 (Version None)
Quarter: 2005Q2

REPORT INFORMATION
  Report Type: 
  Country: None (occurrence: None)
  Receive Date: 20050520
  Receipt Date: 20050507
  Transmission Date: 20051028
  Serious: Yes (Other)
  Sender: FDA-Public Use
  Company Number: 2005BI008293

PATIENT
  Age: 49 Year
  Sex: Female
  Weight: 58.9676 kg

DRUGS (6)
  1. AVONEX [Suspect]
     Indication: MULTIPLE SCLEROSIS
     Dosage: 30 UG; QW; IM
     Route: 030
     Dates: start: 20021028, end: 20031001
  2. AVONEX [Suspect]
     Indication: MULTIPLE SCLEROSIS
     Dosage: 30 UG; QW; IM
     Route: 030
     Dates: start: 20031001, end: 20050418
  3. SYMMETREL [Concomitant]
  4. VALIUM [Concomitant]
  5. LEXAPRO [Concomitant]
  6. ALLEGRA [Concomitant]

REACTIONS (9)
  - ANXIETY [None]
  - APHASIA [None]
  - BLOOD PRESSURE INCREASED [None]
  - FEAR [None]
  - HEART RATE INCREASED [None]
  - HYPERSENSITIVITY [None]
  - INFLUENZA LIKE ILLNESS [None]
  - PARAESTHESIA [None]
  - VERTIGO [None]
